FAERS Safety Report 6850895-7 (Version None)
Quarter: 2010Q3

REPORT INFORMATION
  Report Type: 
  Country: None (occurrence: None)
  Receive Date: 20100716
  Receipt Date: 20080119
  Transmission Date: 20110219
  Serious: No
  Sender: FDA-Public Use
  Company Number: US-PFIZER INC-2007090413

PATIENT
  Age: 23 Year
  Sex: Female
  Weight: 59.4 kg

DRUGS (2)
  1. CHANTIX [Suspect]
     Indication: SMOKING CESSATION THERAPY
  2. ALCOHOL [Suspect]

REACTIONS (3)
  - LETHARGY [None]
  - MOOD ALTERED [None]
  - WHITE BLOOD CELL COUNT INCREASED [None]
